FAERS Safety Report 18270100 (Version 1)
Quarter: 2020Q3

REPORT INFORMATION
  Report Type: Spontaneous
  Country: US (occurrence: US)
  Receive Date: 20200915
  Receipt Date: 20200915
  Transmission Date: 20201103
  Serious: Yes (Other)
  Sender: FDA-Public Use
  Company Number: US-AMGEN-USASP2020147428

PATIENT
  Age: 53 Year
  Sex: Male

DRUGS (11)
  1. CYMBALTA [Concomitant]
     Active Substance: DULOXETINE HYDROCHLORIDE
     Dosage: UNK
  2. OXYCODONE [Concomitant]
     Active Substance: OXYCODONE
     Dosage: UNK
  3. ZYRTEC [Concomitant]
     Active Substance: CETIRIZINE HYDROCHLORIDE
     Dosage: UNK
  4. OTEZLA [Suspect]
     Active Substance: APREMILAST
     Indication: PSORIATIC ARTHROPATHY
     Dosage: 30 MILLIGRAM, BID
     Route: 048
     Dates: start: 20171214
  5. PLAVIX [Concomitant]
     Active Substance: CLOPIDOGREL BISULFATE
     Dosage: UNK
  6. COREG [Concomitant]
     Active Substance: CARVEDILOL
     Dosage: UNK
  7. CHANTIX [Concomitant]
     Active Substance: VARENICLINE TARTRATE
     Dosage: UNK
  8. HUMIRA [Concomitant]
     Active Substance: ADALIMUMAB
     Dosage: UNK
  9. HYDROXYZINE [Concomitant]
     Active Substance: HYDROXYZINE HYDROCHLORIDE
     Dosage: UNK
  10. PROTONIX [OMEPRAZOLE] [Concomitant]
     Active Substance: OMEPRAZOLE
     Dosage: UNK
  11. ZOCOR [Concomitant]
     Active Substance: SIMVASTATIN
     Dosage: UNK

REACTIONS (3)
  - Product supply issue [Unknown]
  - Psoriatic arthropathy [Not Recovered/Not Resolved]
  - Sleep disorder due to general medical condition, insomnia type [Not Recovered/Not Resolved]

NARRATIVE: CASE EVENT DATE: 20200908
